FAERS Safety Report 10327117 (Version 2)
Quarter: 2015Q1

REPORT INFORMATION
  Report Type: Other
  Country: None (occurrence: US)
  Receive Date: 20140720
  Receipt Date: 20150212
  Transmission Date: 20150720
  Serious: Yes (Death, Hospitalization, Other)
  Sender: FDA-Public Use
  Company Number: US-GSKPPD-2014GSK028142

PATIENT
  Age: 71 Year
  Sex: Female

DRUGS (5)
  1. ALTACE [Concomitant]
     Active Substance: RAMIPRIL
  2. LANOXIN [Concomitant]
     Active Substance: DIGOXIN
  3. AVANDIA [Suspect]
     Active Substance: ROSIGLITAZONE MALEATE
     Indication: DIABETES MELLITUS
     Dosage: AVANDIA WAS NOT LISTED AMONG THE PATIENTS RECORDS REVIEWED.
     Route: 048
  4. LASIX [Concomitant]
     Active Substance: FUROSEMIDE
  5. ALDACTONE [Concomitant]
     Active Substance: SPIRONOLACTONE

REACTIONS (3)
  - Cardiac failure congestive [Unknown]
  - Myocardial infarction [Fatal]
  - Palpitations [Recovered/Resolved]

NARRATIVE: CASE EVENT DATE: 20030612
